FAERS Safety Report 10513742 (Version 1)
Quarter: 2014Q4

REPORT INFORMATION
  Report Type: Spontaneous
  Country: US (occurrence: US)
  Receive Date: 20141013
  Receipt Date: 20141013
  Transmission Date: 20150528
  Serious: Yes (Other)
  Sender: FDA-Public Use
  Company Number: US-UCBSA-2014013873

PATIENT
  Sex: Male

DRUGS (3)
  1. KEPPRA [Suspect]
     Active Substance: LEVETIRACETAM
     Indication: SEIZURE
     Dosage: UNK DOSE
  2. EPILIM [Suspect]
     Active Substance: VALPROATE SODIUM
     Indication: SEIZURE
     Dosage: UNK DOSE
  3. CLOBAZAM [Suspect]
     Active Substance: CLOBAZAM
     Indication: SEIZURE
     Dosage: UNK DOSE

REACTIONS (8)
  - Seizure [Recovering/Resolving]
  - Balance disorder [Recovering/Resolving]
  - Osteoporosis [Unknown]
  - Decreased appetite [Unknown]
  - Headache [Unknown]
  - Drooling [Unknown]
  - Salivary hypersecretion [Unknown]
  - Gingival recession [Unknown]
